FAERS Safety Report 6477677-2 (Version None)
Quarter: 2009Q4

REPORT INFORMATION
  Report Type: 
  Country: None (occurrence: None)
  Receive Date: 20091203
  Receipt Date: 20091203
  Transmission Date: 20100525
  Serious: Yes (Life-Threatening)
  Sender: FDA-Public Use
  Company Number: None

PATIENT
  Age: 63 Year
  Sex: Female
  Weight: 59 kg

DRUGS (2)
  1. FOSAMAX [Suspect]
     Indication: OSTEOPOROSIS
     Dosage: 70 MG WEEKLY PO
     Route: 048
     Dates: end: 20091109
  2. FOSAMAX [Suspect]
     Indication: PROPHYLAXIS
     Dosage: 70 MG WEEKLY PO
     Route: 048
     Dates: end: 20091109

REACTIONS (3)
  - ABSCESS [None]
  - OSTEONECROSIS [None]
  - SEPSIS [None]
